FAERS Safety Report 11313321 (Version 1)
Quarter: 2015Q3

REPORT INFORMATION
  Report Type: Report from Study
  Country: DE (occurrence: CO)
  Receive Date: 20150727
  Receipt Date: 20150727
  Transmission Date: 20151125
  Serious: Yes (Death, Hospitalization)
  Sender: FDA-Public Use
  Company Number: DE-ACTELION-A-NJ2015-121169

PATIENT
  Age: 34 Year
  Sex: Male

DRUGS (2)
  1. VENTAVIS [Suspect]
     Active Substance: ILOPROST
     Dosage: 1 DF, TID
     Route: 055
     Dates: start: 20121001
  2. VENTAVIS [Suspect]
     Active Substance: ILOPROST
     Indication: PULMONARY HYPERTENSION
     Dosage: 20 MCG, 6X A DAY
     Route: 055

REACTIONS (2)
  - Fluid retention [Fatal]
  - Swelling [Fatal]

NARRATIVE: CASE EVENT DATE: 201507
